FAERS Safety Report 9509346 (Version 2)
Quarter: 2013Q3

REPORT INFORMATION
  Report Type: Spontaneous
  Country: US (occurrence: US)
  Receive Date: 20130909
  Receipt Date: 20130909
  Transmission Date: 20140515
  Serious: No
  Sender: FDA-Public Use
  Company Number: US-BRISTOL-MYERS SQUIBB COMPANY-18995423

PATIENT
  Age: 36 Year
  Sex: Male
  Weight: 99.77 kg

DRUGS (10)
  1. ABILIFY [Suspect]
     Indication: BIPOLAR I DISORDER
  2. PROZAC [Concomitant]
     Dosage: INT AND RESTARTED 1.5 MONTHS AGO
  3. LISINOPRIL [Concomitant]
  4. NORVASC [Concomitant]
  5. TRIAMTERENE + HCTZ [Concomitant]
  6. XANAX [Concomitant]
  7. KLONOPIN [Concomitant]
  8. IMITREX [Concomitant]
     Indication: MIGRAINE
  9. PROVENTIL [Concomitant]
  10. ADVAIR [Concomitant]

REACTIONS (2)
  - Tardive dyskinesia [Recovering/Resolving]
  - Drug ineffective [Unknown]
